FAERS Safety Report 6136498-0 (Version None)
Quarter: 2009Q1

REPORT INFORMATION
  Report Type: 
  Country: None (occurrence: None)
  Receive Date: 20090330
  Receipt Date: 20090317
  Transmission Date: 20090719
  Serious: Yes (Other)
  Sender: FDA-Public Use
  Company Number: US-PFIZER INC-2006012359

PATIENT
  Sex: Female
  Weight: 77 kg

DRUGS (11)
  1. PROVERA [Suspect]
     Indication: HORMONE REPLACEMENT THERAPY
     Dosage: UNK
     Route: 048
     Dates: start: 19880101, end: 19960101
  2. PROVERA [Suspect]
     Indication: MENOPAUSE
  3. PREMARIN [Suspect]
     Indication: HORMONE REPLACEMENT THERAPY
     Dosage: UNK
     Dates: start: 19880101, end: 19960101
  4. PREMARIN [Suspect]
     Indication: MENOPAUSE
  5. PREMPRO [Suspect]
     Indication: HORMONE REPLACEMENT THERAPY
     Dosage: UNK
     Dates: start: 19960101, end: 19970101
  6. PREMPRO [Suspect]
     Indication: MENOPAUSE
  7. TOPROL-XL [Concomitant]
     Indication: HYPERTENSION
     Dosage: UNK
     Dates: start: 19890101
  8. LASIX [Concomitant]
     Indication: FLUID RETENTION
     Dosage: UNK
     Dates: start: 19890101
  9. LASIX [Concomitant]
     Indication: SWELLING
  10. POTASSIUM [Concomitant]
     Indication: FLUID RETENTION
     Dosage: UNK
     Dates: start: 19890101
  11. POTASSIUM [Concomitant]
     Indication: SWELLING

REACTIONS (1)
  - BREAST CANCER FEMALE [None]
